FAERS Safety Report 5053302-2 (Version None)
Quarter: 2006Q3

REPORT INFORMATION
  Report Type: 
  Country: None (occurrence: None)
  Receive Date: 20060712
  Receipt Date: 20060626
  Transmission Date: 20061208
  Serious: Yes (Hospitalization)
  Sender: FDA-Public Use
  Company Number: DSA_28334_2006

PATIENT
  Age: 65 Year
  Sex: Female

DRUGS (5)
  1. TAVOR [Suspect]
     Dosage: DR ONCE PO
     Route: 048
     Dates: start: 20060608, end: 20060608
  2. DALMADORM [Suspect]
     Dosage: DF ONCE PO
     Route: 048
     Dates: start: 20060608, end: 20060608
  3. TRICYCLIC ANTIDEPRESSANTS [Suspect]
     Dosage: DF ONCE PO
     Route: 048
     Dates: start: 20060608, end: 20060608
  4. PERAZINE [Suspect]
     Dosage: DF ONCE PO
     Route: 048
     Dates: start: 20060608, end: 20060608
  5. ALCOHOL [Suspect]
     Dosage: 500 ML ONCE PO
     Route: 048
     Dates: start: 20060608, end: 20060608

REACTIONS (5)
  - COMA [None]
  - CYANOSIS [None]
  - HYPOTENSION [None]
  - MULTIPLE DRUG OVERDOSE INTENTIONAL [None]
  - SUICIDE ATTEMPT [None]
